FAERS Safety Report 21402377 (Version 2)
Quarter: 2022Q4

REPORT INFORMATION
  Report Type: Spontaneous
  Country: ZA (occurrence: ZA)
  Receive Date: 20221003
  Receipt Date: 20221014
  Transmission Date: 20230112
  Serious: Yes (Life-Threatening, Hospitalization, Other)
  Sender: FDA-Public Use
  Company Number: ZA-TEVA-2022-ZA-2079693

PATIENT
  Age: 24 Year
  Sex: Female
  Weight: 60 kg

DRUGS (3)
  1. METHOTREXATE SODIUM [Suspect]
     Active Substance: METHOTREXATE SODIUM
     Indication: Gestational trophoblastic tumour
     Dosage: 1 GRAM DAILY;
     Route: 042
     Dates: start: 20220901, end: 20220901
  2. ONDANSETRON [Concomitant]
     Active Substance: ONDANSETRON
     Indication: Product used for unknown indication
     Dosage: IVI, PRE-EMPTIVE ANTI-EMETIC, MTX - LOW EMETIC RISK
  3. DEXAMETHASONE [Concomitant]
     Active Substance: DEXAMETHASONE
     Indication: Product used for unknown indication
     Dosage: IVI (ANTI-EMESIS)

REACTIONS (7)
  - Acute kidney injury [Unknown]
  - Pancytopenia [Unknown]
  - Blood creatinine increased [Unknown]
  - Myelosuppression [Unknown]
  - Upper gastrointestinal haemorrhage [Unknown]
  - Renal impairment [Unknown]
  - Thrombocytopenia [Unknown]

NARRATIVE: CASE EVENT DATE: 20220101
